FAERS Safety Report 20653687 (Version 1)
Quarter: 2022Q1

REPORT INFORMATION
  Report Type: Spontaneous
  Country: US (occurrence: None)
  Receive Date: 20220329
  Receipt Date: 20220329
  Transmission Date: 20220423
  Serious: Yes (Other)
  Sender: FDA-Public Use
  Company Number: None

PATIENT
  Age: 36 Year
  Sex: Female
  Weight: 67.5 kg

DRUGS (15)
  1. BUPRENORPHINE\NALOXONE [Suspect]
     Active Substance: BUPRENORPHINE\NALOXONE
     Indication: Drug dependence
     Dosage: OTHER QUANTITY : 75 75;?OTHER FREQUENCY : 2 1/2 TIMES DAILY;?
     Route: 060
     Dates: start: 20110131
  2. ESOMEPRAZOLE [Concomitant]
     Active Substance: ESOMEPRAZOLE
  3. METOPROLOL [Concomitant]
     Active Substance: METOPROLOL
  4. Succinate ER [Concomitant]
  5. TRINTELLIX [Concomitant]
     Active Substance: VORTIOXETINE HYDROBROMIDE
  6. BUPROPION [Concomitant]
     Active Substance: BUPROPION
  7. LIOTHYRONINE [Concomitant]
     Active Substance: LIOTHYRONINE
  8. ABILIFY [Concomitant]
     Active Substance: ARIPIPRAZOLE
  9. HYDROXYZINE [Concomitant]
     Active Substance: HYDROXYZINE HYDROCHLORIDE
  10. DROSPIRENONE\ETHINYL ESTRADIOL [Concomitant]
     Active Substance: DROSPIRENONE\ETHINYL ESTRADIOL
  11. MIRTAZAPINE [Concomitant]
     Active Substance: MIRTAZAPINE
  12. CLONAZEPAM [Concomitant]
     Active Substance: CLONAZEPAM
  13. TORSEMIDE [Concomitant]
     Active Substance: TORSEMIDE
  14. feeding tube [Concomitant]
  15. Osmolite 1.5 [Concomitant]

REACTIONS (2)
  - Tooth infection [None]
  - Gastroparesis postoperative [None]

NARRATIVE: CASE EVENT DATE: 20110131
